FAERS Safety Report 9351577 (Version 1)
Quarter: 2013Q2

REPORT INFORMATION
  Report Type: Report from Study
  Country: DE (occurrence: DE)
  Receive Date: 20130617
  Receipt Date: 20130617
  Transmission Date: 20140414
  Serious: No
  Sender: FDA-Public Use
  Company Number: PHHY2013DE061052

PATIENT
  Sex: Male
  Weight: 77 kg

DRUGS (4)
  1. AMN107 [Suspect]
     Indication: CHRONIC MYELOID LEUKAEMIA
     Dosage: 400 MG, QD
     Route: 048
     Dates: start: 20101026, end: 20110330
  2. LITALIR [Concomitant]
     Dosage: UNK UKN, UNK
     Dates: start: 20100520, end: 20100607
  3. ALLOPURINOL [Concomitant]
     Dosage: UNK UKN, UNK
     Dates: start: 20100520, end: 20100607
  4. CIPROBAY                           /01429801/ [Concomitant]
     Dosage: UNK UKN, UNK
     Dates: start: 20100520, end: 20100607

REACTIONS (4)
  - Alanine aminotransferase increased [Not Recovered/Not Resolved]
  - Aspartate aminotransferase increased [Not Recovered/Not Resolved]
  - Gamma-glutamyltransferase increased [Not Recovered/Not Resolved]
  - Blood bilirubin increased [Not Recovered/Not Resolved]
